FAERS Safety Report 18450220 (Version 2)
Quarter: 2021Q1

REPORT INFORMATION
  Report Type: Report from Study
  Country: IT (occurrence: IT)
  Receive Date: 20201102
  Receipt Date: 20210113
  Transmission Date: 20210419
  Serious: Yes (Hospitalization)
  Sender: FDA-Public Use
  Company Number: IT-TEVA-2020-IT-1843323

PATIENT
  Age: 67 Year
  Sex: Male

DRUGS (8)
  1. MYCOPHENOLATE MOFETIL. [Suspect]
     Active Substance: MYCOPHENOLATE MOFETIL
     Indication: HYPERSENSITIVITY VASCULITIS
     Dosage: 1000 MG
     Route: 065
  2. FOLINA 5 MG CAPSULE MOLLI [Concomitant]
     Dosage: 5 MG
  3. ZYLORIC 300 MG COMPRESSE [Concomitant]
     Active Substance: ALLOPURINOL
     Indication: HYPERURICAEMIA
     Dosage: 300 MG
  4. TRIATEC [Concomitant]
     Indication: HYPERTENSION
     Dosage: 2.5 MG
  5. LENDORMIN 0,25 MG COMPRESSE [Concomitant]
     Dosage: 0.25 MG
  6. DELTACORTENE 5 MG COMPRESSE [Suspect]
     Active Substance: PREDNISONE
     Indication: VASCULITIS
     Dosage: 5 MG
  7. CARDIOASPIRIN 100 MG COMPRESSE GASTRORESISTENTI [Concomitant]
     Active Substance: ASPIRIN
     Indication: DISEASE RISK FACTOR
     Dosage: 100 MG
  8. PANTOPRAZOLE [Concomitant]
     Active Substance: PANTOPRAZOLE
     Dosage: 20 MG

REACTIONS (3)
  - Influenza like illness [Recovering/Resolving]
  - Coronavirus infection [Recovering/Resolving]
  - Emphysema [Recovering/Resolving]

NARRATIVE: CASE EVENT DATE: 20200314
